FAERS Safety Report 19886504 (Version 1)
Quarter: 2021Q3

REPORT INFORMATION
  Report Type: Spontaneous
  Country: JP (occurrence: JP)
  Receive Date: 20210927
  Receipt Date: 20210927
  Transmission Date: 20211014
  Serious: Yes (Hospitalization)
  Sender: FDA-Public Use
  Company Number: JP-ALVOGEN-2021-ALVOGEN-117581

PATIENT
  Age: 14 Year
  Sex: Female

DRUGS (4)
  1. DOXORUBICIN [Concomitant]
     Active Substance: DOXORUBICIN
     Indication: PRODUCT USED FOR UNKNOWN INDICATION
  2. ASPARAGINE [Suspect]
     Active Substance: ASPARAGINE
     Indication: PRODUCT USED FOR UNKNOWN INDICATION
  3. VINCRISTINE [Concomitant]
     Active Substance: VINCRISTINE
     Indication: PRODUCT USED FOR UNKNOWN INDICATION
  4. DEXAMETHASONE. [Suspect]
     Active Substance: DEXAMETHASONE
     Indication: PRODUCT USED FOR UNKNOWN INDICATION

REACTIONS (4)
  - Hyponatraemia [Recovering/Resolving]
  - Hyperglycaemia [Recovering/Resolving]
  - Osmolar gap [Recovering/Resolving]
  - Hypertriglyceridaemia [Recovering/Resolving]
